FAERS Safety Report 5215016-5 (Version None)
Quarter: 2007Q1

REPORT INFORMATION
  Report Type: 
  Country: None (occurrence: None)
  Receive Date: 20070122
  Receipt Date: 20070110
  Transmission Date: 20070707
  Serious: Yes (Hospitalization)
  Sender: FDA-Public Use
  Company Number: US-PFIZER INC-2006074277

PATIENT
  Sex: Male
  Weight: 89.5 kg

DRUGS (13)
  1. SUTENT [Suspect]
     Indication: METASTATIC RENAL CELL CARCINOMA
     Route: 048
     Dates: start: 20040817, end: 20041220
  2. SUTENT [Suspect]
     Indication: RENAL CELL CARCINOMA STAGE UNSPECIFIED
     Route: 048
     Dates: start: 20041221, end: 20050909
  3. SUTENT [Suspect]
     Route: 048
  4. LIPITOR [Concomitant]
     Route: 048
  5. LORAZEPAM [Concomitant]
     Route: 048
  6. ASCORBIC ACID [Concomitant]
     Route: 048
  7. VITAMIN E [Concomitant]
     Route: 048
  8. ASPIRIN [Concomitant]
     Route: 048
  9. DILTIAZEM HCL [Concomitant]
     Route: 048
     Dates: start: 19970101, end: 20060612
  10. ADVIL [Concomitant]
     Route: 048
  11. LOPERAMIDE HCL [Concomitant]
     Route: 048
  12. PRILOSEC [Concomitant]
     Route: 048
  13. SYNTHROID [Concomitant]
     Route: 048
     Dates: start: 20060407, end: 20060613

REACTIONS (2)
  - HYPOTHYROIDISM [None]
  - RENAL FAILURE ACUTE [None]
